FAERS Safety Report 10192772 (Version 2)
Quarter: 2014Q2

REPORT INFORMATION
  Report Type: Spontaneous
  Country: US (occurrence: US)
  Receive Date: 20140523
  Receipt Date: 20140613
  Transmission Date: 20141212
  Serious: No
  Sender: FDA-Public Use
  Company Number: US-PFIZER INC-2014143616

PATIENT
  Age: 62 Year
  Sex: Female

DRUGS (3)
  1. EFFEXOR XR [Suspect]
     Indication: DEPRESSION
     Dosage: UNK
  2. EFFEXOR XR [Suspect]
     Dosage: 220 MG, DAILY
  3. EFFEXOR XR [Suspect]
     Dosage: 300 MG (2X150MG), DAILY

REACTIONS (1)
  - Feeling abnormal [Not Recovered/Not Resolved]
